FAERS Safety Report 23453540 (Version 1)
Quarter: 2024Q1

REPORT INFORMATION
  Report Type: Spontaneous
  Country: US (occurrence: US)
  Receive Date: 20240129
  Receipt Date: 20240129
  Transmission Date: 20240410
  Serious: Yes (Death, Other)
  Sender: FDA-Public Use
  Company Number: US-GILEAD-2024-0659926

PATIENT
  Age: 76 Year
  Sex: Female

DRUGS (5)
  1. TECARTUS [Suspect]
     Active Substance: BREXUCABTAGENE AUTOLEUCEL
     Indication: Mantle cell lymphoma recurrent
     Dosage: UNK
     Route: 042
  2. RITUXIMAB [Concomitant]
     Active Substance: RITUXIMAB
  3. CYTARABINE [Concomitant]
     Active Substance: CYTARABINE
  4. METHOTREXATE [Concomitant]
     Active Substance: METHOTREXATE
  5. ACALABRUTINIB [Concomitant]
     Active Substance: ACALABRUTINIB
     Dosage: UNK

REACTIONS (4)
  - Pancytopenia [Fatal]
  - Immune effector cell-associated neurotoxicity syndrome [Recovered/Resolved]
  - Cytokine release syndrome [Recovered/Resolved]
  - Atrial fibrillation [Recovered/Resolved]
